FAERS Safety Report 16677074 (Version 1)
Quarter: 2019Q3

REPORT INFORMATION
  Report Type: Spontaneous
  Country: US (occurrence: US)
  Receive Date: 20190621
  Receipt Date: 20190621
  Transmission Date: 20191004
  Serious: No
  Sender: FDA-Public Use
  Company Number: None

PATIENT
  Age: 45 Year
  Sex: Female

DRUGS (1)
  1. BENLYSTA [Suspect]
     Active Substance: BELIMUMAB
     Indication: ARTHRALGIA
     Dates: start: 2019

REACTIONS (2)
  - Therapy cessation [None]
  - Sinusitis [None]

NARRATIVE: CASE EVENT DATE: 20190621
